FAERS Safety Report 21585030 (Version 1)
Quarter: 2022Q4

REPORT INFORMATION
  Report Type: Other
  Country: ES (occurrence: ES)
  Receive Date: 20221111
  Receipt Date: 20221111
  Transmission Date: 20230112
  Serious: Yes (Other)
  Sender: FDA-Public Use
  Company Number: None

PATIENT
  Age: 63 Year
  Sex: Male

DRUGS (9)
  1. FOSTAMATINIB DISODIUM [Suspect]
     Active Substance: FOSTAMATINIB DISODIUM
     Indication: Immune thrombocytopenia
     Dosage: 150 MILLIGRAM, BID
     Route: 048
     Dates: start: 20220614, end: 20221013
  2. PRADAXA [Concomitant]
     Active Substance: DABIGATRAN ETEXILATE MESYLATE
     Indication: Atrial fibrillation
     Dosage: 150 MILLIGRAM
     Route: 065
     Dates: start: 20220328
  3. ATORVASTATIN [Concomitant]
     Active Substance: ATORVASTATIN
     Indication: Acute myocardial infarction
     Dosage: 40.0 MG
     Route: 065
     Dates: start: 20220519
  4. OMEPRAZOL PENSA [OMEPRAZOLE] [Concomitant]
     Indication: Cerebrovascular disorder
     Dosage: 20.0 MG A-DE
     Route: 065
     Dates: start: 20160910
  5. EXFORGE HCT [Concomitant]
     Active Substance: AMLODIPINE BESYLATE\HYDROCHLOROTHIAZIDE\VALSARTAN
     Indication: Hypertension
     Dosage: 1 UNK
     Route: 065
     Dates: start: 20221005
  6. TRINISPRAY [Concomitant]
     Indication: Acute myocardial infarction
     Dosage: 0.4 MG
     Route: 060
     Dates: start: 20220331
  7. CLOPIDOGREL NORMON [Concomitant]
     Indication: Acute myocardial infarction
     Dosage: 75.0 MG
     Route: 065
     Dates: start: 20220328
  8. SOLIFENACIN\TAMSULOSIN [Concomitant]
     Active Substance: SOLIFENACIN\TAMSULOSIN
     Indication: Dysuria
     Dosage: UNK, QD
     Route: 065
     Dates: start: 20220218
  9. BISOPROLOL AUROVITAS [Concomitant]
     Indication: Atrial fibrillation
     Dosage: 5.0 MG DE
     Route: 065
     Dates: start: 20210826

REACTIONS (1)
  - Hypertransaminasaemia [Recovering/Resolving]

NARRATIVE: CASE EVENT DATE: 20221013
